FAERS Safety Report 20562352 (Version 1)
Quarter: 2022Q1

REPORT INFORMATION
  Report Type: Other
  Country: GB (occurrence: GB)
  Receive Date: 20220307
  Receipt Date: 20220307
  Transmission Date: 20220423
  Serious: Yes (Other)
  Sender: FDA-Public Use
  Company Number: GB-MHRA-MED-202203051354529160-X3TFW

PATIENT
  Age: 53 Year
  Sex: Male

DRUGS (2)
  1. SOLIFENACIN [Suspect]
     Active Substance: SOLIFENACIN
     Indication: Hypertonic bladder
     Dosage: UNK UNK, UNKNOWN FREQ.
     Route: 065
  2. SOLIFENACIN [Suspect]
     Active Substance: SOLIFENACIN
     Dosage: UNK UNK, UNKNOWN FREQ.
     Route: 065

REACTIONS (1)
  - Erectile dysfunction [Not Recovered/Not Resolved]
